FAERS Safety Report 9518893 (Version 1)
Quarter: 2013Q3

REPORT INFORMATION
  Report Type: Spontaneous
  Country: IL (occurrence: IL)
  Receive Date: 20130912
  Receipt Date: 20130912
  Transmission Date: 20140515
  Serious: Yes (Hospitalization)
  Sender: FDA-Public Use
  Company Number: IL-PFIZER INC-2013260267

PATIENT
  Age: 55 Year
  Sex: Male

DRUGS (8)
  1. TRITACE [Suspect]
     Dosage: 2.5 MG, UNK
     Route: 065
  2. LIPITOR [Suspect]
     Dosage: 40 MG, UNK
  3. PLAVIX [Suspect]
     Dosage: 75 MG, UNK
     Route: 065
  4. TASIGNA [Concomitant]
     Dosage: UNK
  5. ASPIRIN [Concomitant]
     Dosage: UNK
  6. FAMOTIDINE [Concomitant]
     Dosage: 40 MG, UNK
  7. IKAPRESS [Concomitant]
     Dosage: 240 MG, UNK
  8. ARIXTRA [Concomitant]
     Dosage: 2.5 MG, UNK
     Route: 058

REACTIONS (1)
  - Myocardial infarction [Recovered/Resolved]
